FAERS Safety Report 7954545-8 (Version None)
Quarter: 2011Q4

REPORT INFORMATION
  Report Type: 
  Country: None (occurrence: None)
  Receive Date: 20111202
  Receipt Date: 20111123
  Transmission Date: 20120403
  Serious: Yes (Other)
  Sender: FDA-Public Use
  Company Number: BE-ALEXION PHARMACEUTICALS INC.-A201101713

PATIENT
  Sex: Female

DRUGS (8)
  1. OMEPRAZOLE [Concomitant]
     Dosage: 20 MG QDUNK
     Route: 048
     Dates: start: 20111001
  2. MIRTAZAPINE [Concomitant]
     Dosage: 45 MG QD (LONG TERM TREATMENT)
     Route: 048
  3. SOLIRIS [Suspect]
     Indication: HAEMOLYTIC URAEMIC SYNDROME
     Dosage: 900 MG QW
     Route: 042
     Dates: start: 20111014, end: 20111104
  4. CIPROFLOXACIN [Concomitant]
     Indication: MENINGITIS
     Dosage: 500 MG BD
     Route: 048
     Dates: start: 20111001, end: 20111104
  5. ACETAMINOPHEN [Concomitant]
     Dosage: 1 GM MAX, PRN
     Route: 048
     Dates: start: 20111122, end: 20111128
  6. SOLIRIS [Suspect]
     Dosage: 1200 MG Q2W (PLANNED)
     Route: 042
     Dates: start: 20111110
  7. METHYLPREDNISOLONE [Concomitant]
     Indication: THROMBOTIC MICROANGIOPATHY
     Dosage: 4 MG QD
     Route: 048
     Dates: start: 20111011, end: 20111013
  8. ALPRAZOLAM [Concomitant]
     Dosage: 0.5 MG QD (LONG TERM TREATMENT)
     Route: 048

REACTIONS (2)
  - HEPATIC ENZYME INCREASED [None]
  - ABDOMINAL PAIN [None]
